FAERS Safety Report 4677801-8 (Version None)
Quarter: 2005Q2

REPORT INFORMATION
  Report Type: 
  Country: None (occurrence: None)
  Receive Date: 20050531
  Receipt Date: 20050517
  Transmission Date: 20051028
  Serious: Yes (Hospitalization)
  Sender: FDA-Public Use
  Company Number: JP-JNJFOC-20041205357

PATIENT
  Age: 39 Year
  Sex: Male

DRUGS (1)
  1. OFLOXACIN [Suspect]
     Route: 049
     Dates: start: 20041127, end: 20041202

REACTIONS (14)
  - ASTHENIA [None]
  - BASOPHILIA [None]
  - CHRONIC FATIGUE SYNDROME [None]
  - DIARRHOEA [None]
  - DIZZINESS [None]
  - DRUG INTOLERANCE [None]
  - DUODENAL ULCER [None]
  - EOSINOPHILIA [None]
  - GASTRIC ULCER [None]
  - GASTRITIS [None]
  - GASTRITIS EROSIVE [None]
  - MYALGIA [None]
  - PAIN IN EXTREMITY [None]
  - PARESIS [None]
